FAERS Safety Report 9325431 (Version 1)
Quarter: 2013Q2

REPORT INFORMATION
  Report Type: Spontaneous
  Country: US (occurrence: None)
  Receive Date: 20130531
  Receipt Date: 20130531
  Transmission Date: 20140414
  Serious: Yes (Hospitalization)
  Sender: FDA-Public Use
  Company Number: None

PATIENT
  Age: 85 Year
  Sex: Male
  Weight: 72.5 kg

DRUGS (2)
  1. OXYBUTYNIN [Suspect]
     Indication: POLLAKIURIA
     Route: 048
     Dates: start: 20111130, end: 20130517
  2. TOLTERODINE [Suspect]
     Route: 048
     Dates: start: 20130405, end: 20130518

REACTIONS (6)
  - Presyncope [None]
  - Dizziness [None]
  - Vision blurred [None]
  - Fatigue [None]
  - Dyspnoea [None]
  - Accidental exposure to product [None]
